FAERS Safety Report 25857584 (Version 4)
Quarter: 2025Q4

REPORT INFORMATION
  Report Type: Spontaneous
  Country: JP (occurrence: JP)
  Receive Date: 20250929
  Receipt Date: 20251222
  Transmission Date: 20260118
  Serious: No
  Sender: SUNOVION
  Company Number: JP-SMPA-2025SPA012596

PATIENT
  Age: 50 Year
  Sex: Female

DRUGS (6)
  1. RELUGOLIX [Suspect]
     Active Substance: RELUGOLIX
     Indication: Uterine leiomyoma
     Dosage: 40 MG
     Route: 048
     Dates: start: 20250423, end: 20250815
  2. RELUGOLIX [Suspect]
     Active Substance: RELUGOLIX
     Indication: Endometriosis
  3. RELUGOLIX [Suspect]
     Active Substance: RELUGOLIX
     Indication: Adenomyosis
  4. RELUGOLIX [Suspect]
     Active Substance: RELUGOLIX
     Indication: Dysmenorrhoea
  5. HERBALS [Concomitant]
     Active Substance: HERBALS
     Indication: Hot flush
     Dosage: 22.5 G, QD
     Route: 048
     Dates: start: 20250616, end: 20250715
  6. DIENOGEST [Concomitant]
     Active Substance: DIENOGEST
     Dosage: 2 MG, QD
     Route: 048

REACTIONS (1)
  - Chest pain [Recovered/Resolved]

NARRATIVE: CASE EVENT DATE: 20250801
